FAERS Safety Report 23494372 (Version 1)
Quarter: 2024Q1

REPORT INFORMATION
  Report Type: Other
  Country: US (occurrence: None)
  Receive Date: 20240207
  Receipt Date: 20240207
  Transmission Date: 20240410
  Serious: No
  Sender: FDA-Public Use
  Company Number: US-ROCHE-3505744

PATIENT
  Age: 46 Year
  Sex: Female
  Weight: 74.002 kg

DRUGS (1)
  1. OCREVUS [Suspect]
     Active Substance: OCRELIZUMAB
     Indication: Multiple sclerosis
     Route: 065

REACTIONS (4)
  - COVID-19 [Unknown]
  - Micturition urgency [Unknown]
  - Asthenia [Unknown]
  - Vitamin D deficiency [Unknown]
